FAERS Safety Report 8973766 (Version 1)
Quarter: 2012Q4

REPORT INFORMATION
  Report Type: 
  Country: US (occurrence: US)
  Receive Date: 20121218
  Receipt Date: 20121218
  Transmission Date: 20130627
  Serious: No
  Sender: FDA-Public Use
  Company Number: US-BRISTOL-MYERS SQUIBB COMPANY-16410458

PATIENT
  Age: 51 Year
  Sex: Male
  Weight: 102 kg

DRUGS (1)
  1. ABILIFY [Suspect]
     Indication: BIPOLAR II DISORDER
     Dates: end: 20120101

REACTIONS (4)
  - Tremor [Unknown]
  - Amnesia [Unknown]
  - Irritability [Unknown]
  - Psychomotor hyperactivity [Unknown]
